FAERS Safety Report 9353304 (Version 2)
Quarter: 2013Q3

REPORT INFORMATION
  Report Type: Spontaneous
  Country: US (occurrence: US)
  Receive Date: 20130618
  Receipt Date: 20130709
  Transmission Date: 20140515
  Serious: Yes (Other)
  Sender: FDA-Public Use
  Company Number: US-PFIZER INC-2013178616

PATIENT
  Sex: Male

DRUGS (1)
  1. ADVIL [Suspect]
     Indication: ANALGESIC THERAPY
     Dosage: UNK

REACTIONS (2)
  - Haematochezia [Unknown]
  - Malaise [Unknown]
